FAERS Safety Report 23754968 (Version 2)
Quarter: 2024Q2

REPORT INFORMATION
  Report Type: Report from Study
  Country: CA (occurrence: CA)
  Receive Date: 20240418
  Receipt Date: 20240515
  Transmission Date: 20240716
  Serious: No
  Sender: FDA-Public Use
  Company Number: CA-ABBVIE-5722853

PATIENT
  Age: 77 Year
  Sex: Female

DRUGS (3)
  1. CARBIDOPA\LEVODOPA [Suspect]
     Active Substance: CARBIDOPA\LEVODOPA
     Indication: Parkinson^s disease
     Dosage: DUODOPA-LEVODOPA20MG/ML,CARBIDOPAMONOHYDRATE5MG/ML
     Route: 050
     Dates: start: 20210719
  2. CARBIDOPA\LEVODOPA [Suspect]
     Active Substance: CARBIDOPA\LEVODOPA
     Route: 050
     Dates: start: 20240411
  3. CARBIDOPA\LEVODOPA [Concomitant]
     Active Substance: CARBIDOPA\LEVODOPA
     Indication: Parkinson^s disease

REACTIONS (6)
  - Balance disorder [Unknown]
  - Hallucination [Unknown]
  - Unintentional medical device removal [Recovered/Resolved]
  - Diarrhoea [Unknown]
  - Asthenia [Unknown]
  - Malnutrition [Unknown]
